FAERS Safety Report 10687221 (Version 2)
Quarter: 2015Q1

REPORT INFORMATION
  Report Type: Spontaneous
  Country: PT (occurrence: PT)
  Receive Date: 20150102
  Receipt Date: 20150102
  Transmission Date: 20150720
  Serious: Yes (Other)
  Sender: FDA-Public Use
  Company Number: PT-CELGENE-130-21880-14053333

PATIENT

DRUGS (1)
  1. REVLIMID [Suspect]
     Active Substance: LENALIDOMIDE
     Indication: 5Q MINUS SYNDROME
     Route: 048

REACTIONS (4)
  - Therapeutic response decreased [Unknown]
  - Leukaemia [Unknown]
  - Cytopenia [Unknown]
  - Myelodysplastic syndrome [Unknown]
